FAERS Safety Report 4941567-4 (Version None)
Quarter: 2006Q1

REPORT INFORMATION
  Report Type: 
  Country: None (occurrence: None)
  Receive Date: 20060308
  Receipt Date: 20060227
  Transmission Date: 20060701
  Serious: Yes (Death, Other)
  Sender: FDA-Public Use
  Company Number: 2006JP000518

PATIENT
  Age: 59 Year
  Sex: Male

DRUGS (6)
  1. PROGRAF [Suspect]
     Indication: BONE MARROW TRANSPLANT
     Dates: start: 20050101
  2. FUNGUARD (MICAFUNGIN) INJECTION [Suspect]
     Indication: FUNGAL INFECTION
     Dosage: IV DRIP
     Route: 041
     Dates: start: 20040101
  3. FUNGUARD (MICAFUNGIN) INJECTION [Suspect]
     Indication: FUNGAL INFECTION
     Dosage: IV DRIP
     Route: 041
     Dates: start: 20050101
  4. CYCLOSPORINE [Concomitant]
  5. METHYLPREDNISOLONE [Concomitant]
  6. ITRACONAZOLE [Concomitant]

REACTIONS (6)
  - BLOOD BETA-D-GLUCAN INCREASED [None]
  - ENGRAFTMENT SYNDROME [None]
  - GRAFT VERSUS HOST DISEASE [None]
  - HAEMOPTYSIS [None]
  - MUCORMYCOSIS [None]
  - THROMBOTIC MICROANGIOPATHY [None]
